FAERS Safety Report 8286407 (Version 5)
Quarter: 2012Q4

REPORT INFORMATION
  Report Type: 
  Country: US (occurrence: US)
  Receive Date: 20111213
  Receipt Date: 20121030
  Transmission Date: 20130627
  Serious: Yes (Hospitalization)
  Sender: FDA-Public Use
  Company Number: US-BAYER-2011-116734

PATIENT
  Age: 39 Year
  Sex: Female
  Weight: 95.24 kg

DRUGS (11)
  1. YAZ [Suspect]
     Dosage: UNK
     Dates: start: 20050215, end: 200609
  2. YASMIN [Suspect]
     Indication: POLYCYSTIC OVARIAN SYNDROME
     Dosage: UNK
     Dates: start: 20050215, end: 20060930
  3. YASMIN [Suspect]
     Indication: POLYCYSTIC OVARIAN SYNDROME
     Dosage: UNK
     Dates: start: 200501
  4. METFORMIN [Concomitant]
     Dosage: 500 mg, QD
     Route: 048
  5. BUSPAR [Concomitant]
     Dosage: 5 mg, TID
     Route: 048
  6. SPIRONOLACTONE [Concomitant]
     Dosage: 50 mg, QD
     Route: 048
  7. LEVOXYL [Concomitant]
     Dosage: 25 mcg/24hr, QD
     Route: 048
  8. CYTOMEL [Concomitant]
     Dosage: 25 mcg/24hr, BID
     Route: 048
  9. PHENTERMINE [Concomitant]
     Dosage: 30 mg, QD
     Route: 048
  10. ORAL CONTRACEPTIVE NOS [Concomitant]
     Dosage: UNK UNK, QD
     Route: 048
  11. LEXAPRO [Concomitant]
     Dosage: 20 mg, QD
     Route: 048

REACTIONS (18)
  - Deep vein thrombosis [Recovered/Resolved]
  - Pain in extremity [Recovered/Resolved]
  - Oedema peripheral [Recovered/Resolved]
  - General physical health deterioration [None]
  - Anxiety [None]
  - Emotional distress [None]
  - Anhedonia [None]
  - Depression [None]
  - Stress [None]
  - Weight increased [None]
  - Fear [None]
  - Gingival bleeding [None]
  - Gait disturbance [Recovered/Resolved]
  - Varicose vein [None]
  - Insomnia [None]
  - Alopecia [None]
  - Ligament sprain [None]
  - Fatigue [Recovered/Resolved]
